FAERS Safety Report 9386722 (Version 2)
Quarter: 2013Q3

REPORT INFORMATION
  Report Type: Spontaneous
  Country: US (occurrence: US)
  Receive Date: 20130708
  Receipt Date: 20130730
  Transmission Date: 20140515
  Serious: Yes (Other)
  Sender: FDA-Public Use
  Company Number: US-PFIZER INC-2013198384

PATIENT
  Age: 73 Year
  Sex: Female
  Weight: 75.28 kg

DRUGS (12)
  1. LYRICA [Suspect]
     Indication: FIBROMYALGIA
     Dosage: 75 MG, 1X/DAY
     Dates: start: 2009
  2. ZOLPIDEM TARTRATE [Concomitant]
     Indication: SLEEP DISORDER
     Dosage: 10 MG, 1X/DAY
  3. OMEPRAZOLE [Concomitant]
     Indication: ABDOMINAL DISCOMFORT
     Dosage: 20 MG, 1X/DAY
  4. LATANOPROST [Concomitant]
     Indication: GLAUCOMA
     Dosage: 1 GTT, 1X/DAY
     Route: 047
  5. CARTEOLOL [Concomitant]
     Indication: GLAUCOMA
     Dosage: 1 GTT, 2X/DAY
  6. FISH OIL [Concomitant]
     Indication: SUPPLEMENTATION THERAPY
     Dosage: UNK, 1X/DAY
  7. CALCIUM [Concomitant]
     Indication: SUPPLEMENTATION THERAPY
     Dosage: UNK, 1X/DAY
  8. CRANBERRY [Concomitant]
     Indication: SUPPLEMENTATION THERAPY
     Dosage: UNK, 1X/DAY
  9. LYSINE [Concomitant]
     Indication: SUPPLEMENTATION THERAPY
     Dosage: 500 MG, 1X/DAY
  10. MAGNESIUM [Concomitant]
     Dosage: 400 MG, 2X/DAY
  11. ASPIRIN [Concomitant]
     Dosage: 81 MG, 1X/DAY
  12. RED YEAST RICE [Concomitant]
     Dosage: 1200 MG, 1X/DAY

REACTIONS (4)
  - Glomerular filtration rate abnormal [Unknown]
  - Aphthous stomatitis [Not Recovered/Not Resolved]
  - Oral herpes [Unknown]
  - Stomatitis [Unknown]
